FAERS Safety Report 20783669 (Version 1)
Quarter: 2022Q2

REPORT INFORMATION
  Report Type: Spontaneous
  Country: US (occurrence: US)
  Receive Date: 20220504
  Receipt Date: 20220504
  Transmission Date: 20220720
  Serious: No
  Sender: FDA-Public Use
  Company Number: US-PFIZER INC-2021881887

PATIENT
  Age: 65 Year
  Sex: Female
  Weight: 99.7 kg

DRUGS (1)
  1. SULFASALAZINE [Suspect]
     Active Substance: SULFASALAZINE
     Indication: Rheumatoid arthritis
     Dosage: 1000 MG, 2X/DAY (TWO TABLETS IN MORNING AND TWO TABLETS AT NIGHT)
     Route: 048

REACTIONS (1)
  - Pain [Unknown]
